FAERS Safety Report 11990488 (Version 2)
Quarter: 2016Q1

REPORT INFORMATION
  Report Type: Spontaneous
  Country: US (occurrence: US)
  Receive Date: 20160202
  Receipt Date: 20160225
  Transmission Date: 20160526
  Serious: Yes (Other)
  Sender: FDA-Public Use
  Company Number: US-PFIZER INC-2016053097

PATIENT
  Age: 44 Year
  Sex: Female

DRUGS (2)
  1. LYRICA [Suspect]
     Active Substance: PREGABALIN
     Dosage: 300 MG, 2X/DAY
  2. LYRICA [Suspect]
     Active Substance: PREGABALIN
     Indication: NEURALGIA
     Dosage: AT LOWER THEN, TWICE A DAY

REACTIONS (10)
  - Compartment syndrome [Unknown]
  - Diabetic ulcer [Unknown]
  - Impaired driving ability [Unknown]
  - Impaired work ability [Unknown]
  - Nerve injury [Unknown]
  - Diabetic coma [Unknown]
  - Migraine [Unknown]
  - Increased appetite [Unknown]
  - Abasia [Not Recovered/Not Resolved]
  - Arthropathy [Unknown]
